FAERS Safety Report 12242105 (Version 3)
Quarter: 2016Q2

REPORT INFORMATION
  Report Type: Spontaneous
  Country: US (occurrence: US)
  Receive Date: 20160406
  Receipt Date: 20160601
  Transmission Date: 20160815
  Serious: Yes (Other)
  Sender: FDA-Public Use
  Company Number: US-CELGENEUS-USA-2016040124

PATIENT
  Age: 74 Year
  Sex: Male

DRUGS (2)
  1. REVLIMID [Suspect]
     Active Substance: LENALIDOMIDE
     Route: 048
     Dates: start: 2016
  2. REVLIMID [Suspect]
     Active Substance: LENALIDOMIDE
     Indication: MYELODYSPLASTIC SYNDROME
     Route: 048
     Dates: start: 20160317, end: 20160328

REACTIONS (7)
  - Arrhythmia [Unknown]
  - Blood pressure decreased [Unknown]
  - Haemoglobin decreased [Unknown]
  - Loss of consciousness [Unknown]
  - Nausea [Unknown]
  - Full blood count decreased [Unknown]
  - Platelet count decreased [Unknown]

NARRATIVE: CASE EVENT DATE: 2016
